FAERS Safety Report 5079456-X (Version None)
Quarter: 2006Q3

REPORT INFORMATION
  Report Type: 
  Country: None (occurrence: None)
  Receive Date: 20060814
  Receipt Date: 20060731
  Transmission Date: 20061208
  Serious: Yes (Other)
  Sender: FDA-Public Use
  Company Number: BR-ROCHE-458179

PATIENT
  Age: 16 Year
  Sex: Male
  Weight: 60 kg

DRUGS (3)
  1. ROACUTAN [Suspect]
     Indication: DRUG USE FOR UNKNOWN INDICATION
     Route: 048
     Dates: start: 20060505, end: 20060611
  2. ROACUTAN [Suspect]
     Route: 048
     Dates: start: 20060612, end: 20060720
  3. ROACUTAN [Suspect]
     Route: 048
     Dates: start: 20060721, end: 20060725

REACTIONS (6)
  - ACCOMMODATION DISORDER [None]
  - ALANINE AMINOTRANSFERASE ABNORMAL [None]
  - BLOOD ALKALINE PHOSPHATASE ABNORMAL [None]
  - DIZZINESS [None]
  - NEUROPATHY [None]
  - VIRAL INFECTION [None]
